FAERS Safety Report 14765265 (Version 3)
Quarter: 2018Q2

REPORT INFORMATION
  Report Type: Report from Study
  Country: US (occurrence: US)
  Receive Date: 20180416
  Receipt Date: 20180613
  Transmission Date: 20180711
  Serious: Yes (Other)
  Sender: FDA-Public Use
  Company Number: US-PFIZER INC-2018001564

PATIENT
  Age: 77 Year
  Sex: Female

DRUGS (3)
  1. IBRANCE [Suspect]
     Active Substance: PALBOCICLIB
     Dosage: 125 MG, DAILY
     Route: 048
     Dates: start: 20180116
  2. IBRANCE [Suspect]
     Active Substance: PALBOCICLIB
     Dosage: 125 MG, DAILY
     Route: 048
     Dates: start: 20171219
  3. IBRANCE [Suspect]
     Active Substance: PALBOCICLIB
     Indication: BREAST CANCER FEMALE
     Dosage: 125 MG, DAILY
     Route: 048
     Dates: start: 20171219, end: 20171229

REACTIONS (15)
  - Leukopenia [Not Recovered/Not Resolved]
  - Drug dose omission [Unknown]
  - Thrombocytopenia [Unknown]
  - Influenza [Unknown]
  - Anaemia [Unknown]
  - Bone marrow failure [Unknown]
  - Hepatic pain [Unknown]
  - Dry skin [Unknown]
  - Pyrexia [Unknown]
  - Stomatitis [Unknown]
  - Pruritus [Unknown]
  - Cough [Unknown]
  - Nausea [Unknown]
  - Fatigue [Unknown]
  - Erythema [Unknown]

NARRATIVE: CASE EVENT DATE: 2017
